FAERS Safety Report 6060971-7 (Version None)
Quarter: 2009Q1

REPORT INFORMATION
  Report Type: 
  Country: None (occurrence: None)
  Receive Date: 20090129
  Receipt Date: 20090129
  Transmission Date: 20090719
  Serious: No
  Sender: FDA-Public Use
  Company Number: None

PATIENT
  Sex: Female
  Weight: 55.91 kg

DRUGS (15)
  1. GLYBURIDE [Suspect]
     Dosage: 5MG TABLET 2.5 MG BID ORAL
     Route: 048
     Dates: start: 20080514, end: 20090128
  2. ALDACTONE [Concomitant]
  3. ASA (CHILDREN [Concomitant]
  4. COREG [Concomitant]
  5. COUMADIN [Concomitant]
  6. DIGOXIN [Concomitant]
  7. IMDUR ER (ISOSORBIDE MONONITRATE (5K)) [Concomitant]
  8. LASIX [Concomitant]
  9. LIPITOR [Concomitant]
  10. METFORNIN [Concomitant]
  11. MVIT [Concomitant]
  12. NIASPAN [Concomitant]
  13. NITROGLYCERIN [Concomitant]
  14. PLAVIX [Concomitant]
  15. PRINIVIL [Concomitant]

REACTIONS (1)
  - HYPOGLYCAEMIA [None]
